FAERS Safety Report 4326669-8 (Version None)
Quarter: 2004Q1

REPORT INFORMATION
  Report Type: 
  Country: None (occurrence: None)
  Receive Date: 20040329
  Receipt Date: 20040329
  Transmission Date: 20041129
  Serious: Yes (Hospitalization)
  Sender: FDA-Public Use
  Company Number: None

PATIENT
  Age: 12 Year
  Sex: Male
  Weight: 35.3806 kg

DRUGS (4)
  1. ZOLOFT [Suspect]
     Indication: DEPRESSION
     Dosage: 25 MG 1 PER DAY ORAL
     Route: 048
     Dates: start: 20031024, end: 20031114
  2. ZOLOFT [Suspect]
     Indication: DYSTHYMIC DISORDER
     Dosage: 25 MG 1 PER DAY ORAL
     Route: 048
     Dates: start: 20031024, end: 20031114
  3. ZOLOFT [Suspect]
     Indication: DEPRESSION
     Dosage: 50 MG 1 PER DAY ORAL
     Route: 048
     Dates: start: 20031115, end: 20031120
  4. ZOLOFT [Suspect]
     Indication: DYSTHYMIC DISORDER
     Dosage: 50 MG 1 PER DAY ORAL
     Route: 048
     Dates: start: 20031115, end: 20031120

REACTIONS (6)
  - ABNORMAL BEHAVIOUR [None]
  - AGGRESSION [None]
  - CONDITION AGGRAVATED [None]
  - EMOTIONAL DISORDER [None]
  - IMPULSIVE BEHAVIOUR [None]
  - SUICIDAL IDEATION [None]
